FAERS Safety Report 10274089 (Version 1)
Quarter: 2014Q3

REPORT INFORMATION
  Report Type: Spontaneous
  Country: DK (occurrence: DE)
  Receive Date: 20140702
  Receipt Date: 20140702
  Transmission Date: 20150326
  Serious: Yes (Congenital Anomaly)
  Sender: FDA-Public Use
  Company Number: DE-FRI-1000068656

PATIENT
  Age: 0 Year
  Sex: Male
  Weight: 3.3 kg

DRUGS (3)
  1. ESCITALOPRAM [Suspect]
     Active Substance: ESCITALOPRAM OXALATE
     Dosage: 40 MG
     Route: 064
     Dates: start: 20130314, end: 2013
  2. ESCITALOPRAM [Suspect]
     Active Substance: ESCITALOPRAM OXALATE
     Dosage: 10 MG
     Route: 064
     Dates: start: 2013, end: 20131214
  3. FEMIBION [Concomitant]
     Active Substance: VITAMINS
     Indication: PROPHYLAXIS OF NEURAL TUBE DEFECT
     Route: 064
     Dates: start: 20130420, end: 20131214

REACTIONS (8)
  - Ventricular septal defect [Not Recovered/Not Resolved]
  - Atrial septal defect [Unknown]
  - Anal atresia [Unknown]
  - Vitello-intestinal duct remnant [Recovered/Resolved with Sequelae]
  - Foetal exposure during pregnancy [Not Recovered/Not Resolved]
  - Ectopic kidney [Not Recovered/Not Resolved]
  - Prescribed overdose [Not Recovered/Not Resolved]
  - Patent ductus arteriosus [Unknown]

NARRATIVE: CASE EVENT DATE: 20130314
